FAERS Safety Report 6669835-9 (Version None)
Quarter: 2010Q2

REPORT INFORMATION
  Report Type: 
  Country: None (occurrence: None)
  Receive Date: 20100406
  Receipt Date: 20100112
  Transmission Date: 20101027
  Serious: No
  Sender: FDA-Public Use
  Company Number: US-ALLERGAN-0907572US

PATIENT
  Age: 53 Year
  Sex: Female

DRUGS (6)
  1. LATISSE [Suspect]
     Indication: GROWTH OF EYELASHES
     Dosage: 1 GTT, UNK
     Route: 061
     Dates: start: 20090501, end: 20090601
  2. LATISSE [Suspect]
     Dosage: UNK
     Dates: start: 20090701
  3. LEXAPRO [Concomitant]
     Dosage: UNK, QD
  4. ATIVAN [Concomitant]
  5. HORMONES NOS [Concomitant]
  6. PERIOSTAT [Concomitant]
     Dosage: UNK, QD

REACTIONS (1)
  - MADAROSIS [None]
